FAERS Safety Report 5869779-6 (Version None)
Quarter: 2008Q3

REPORT INFORMATION
  Report Type: 
  Country: None (occurrence: None)
  Receive Date: 20080904
  Receipt Date: 20080825
  Transmission Date: 20090109
  Serious: Yes (Other)
  Sender: FDA-Public Use
  Company Number: US-ALLERGAN-0802639US

PATIENT
  Sex: Female

DRUGS (4)
  1. BOTOX COSMETIC [Suspect]
     Indication: SKIN WRINKLING
     Dosage: 55 UNITS, SINGLE
     Route: 030
     Dates: start: 20071031, end: 20071031
  2. BOTOX COSMETIC [Suspect]
     Dosage: 55 UNITS, SINGLE
     Route: 030
     Dates: start: 20080304, end: 20080304
  3. BOTOX COSMETIC [Suspect]
     Dosage: 55 UNITS, SINGLE
     Route: 030
     Dates: start: 20080807, end: 20080807
  4. VITAMIN TAB [Concomitant]
     Indication: VITAMIN SUPPLEMENTATION
     Dosage: UNK, QD
     Route: 048

REACTIONS (1)
  - HEPATIC ENZYME INCREASED [None]
